FAERS Safety Report 24545701 (Version 1)
Quarter: 2024Q4

REPORT INFORMATION
  Report Type: Report from Study
  Country: US (occurrence: US)
  Receive Date: 20241024
  Receipt Date: 20241024
  Transmission Date: 20250114
  Serious: Yes (Other)
  Sender: JOHNSON AND JOHNSON
  Company Number: US-JNJFOC-20241052811

PATIENT
  Age: 31 Year
  Sex: Male

DRUGS (2)
  1. SPRAVATO [Suspect]
     Active Substance: ESKETAMINE
     Indication: Depression
     Dosage: ^56 MG,1 TOTAL DOSE^
     Dates: start: 20240807, end: 20240807
  2. SPRAVATO [Suspect]
     Active Substance: ESKETAMINE
     Dosage: ^84 MG, 15 TOTAL DOSES^
     Dates: start: 20240809, end: 20241015

REACTIONS (3)
  - Hallucination, auditory [Not Recovered/Not Resolved]
  - Blood pressure increased [Not Recovered/Not Resolved]
  - Taste disorder [Unknown]

NARRATIVE: CASE EVENT DATE: 20240101
